FAERS Safety Report 5884372-7 (Version None)
Quarter: 2008Q3

REPORT INFORMATION
  Report Type: 
  Country: None (occurrence: None)
  Receive Date: 20080915
  Receipt Date: 20080903
  Transmission Date: 20090109
  Serious: Yes (Disabling)
  Sender: FDA-Public Use
  Company Number: IE-PFIZER INC-2008070499

PATIENT
  Sex: Female
  Weight: 165 kg

DRUGS (6)
  1. LYRICA [Suspect]
     Indication: GENERALISED ANXIETY DISORDER
     Dosage: DAILY DOSE:150MG
     Route: 048
     Dates: start: 20080811
  2. LYRICA [Suspect]
     Indication: DEPRESSION
  3. ELTROXIN [Concomitant]
     Route: 048
  4. PRIADEL [Concomitant]
     Route: 048
  5. PROZAC [Concomitant]
     Route: 048
  6. MOTILIUM ^JANSSEN^ [Concomitant]
     Route: 048

REACTIONS (6)
  - CONFUSIONAL STATE [None]
  - DISORIENTATION [None]
  - DISSOCIATION [None]
  - DISTURBANCE IN ATTENTION [None]
  - DIZZINESS [None]
  - SOMNOLENCE [None]
